FAERS Safety Report 4810962-6 (Version None)
Quarter: 2005Q4

REPORT INFORMATION
  Report Type: 
  Country: None (occurrence: None)
  Receive Date: 20051025
  Receipt Date: 20051012
  Transmission Date: 20060501
  Serious: Yes (Hospitalization, Other)
  Sender: FDA-Public Use
  Company Number: 2005142787

PATIENT
  Sex: Female

DRUGS (4)
  1. DETROL [Suspect]
     Indication: ILL-DEFINED DISORDER
     Dosage: ORAL
     Route: 048
     Dates: start: 20010101
  2. VICODIN [Suspect]
     Indication: PAIN
     Dates: start: 20040101
  3. CELEBREX [Concomitant]
  4. GLIPIZIDE [Concomitant]

REACTIONS (6)
  - ARTHRALGIA [None]
  - BLOOD GLUCOSE INCREASED [None]
  - BLOOD PRESSURE INCREASED [None]
  - CONSTIPATION [None]
  - INSOMNIA [None]
  - KNEE ARTHROPLASTY [None]
